FAERS Safety Report 21225529 (Version 1)
Quarter: 2022Q3

REPORT INFORMATION
  Report Type: Spontaneous
  Country: JP (occurrence: None)
  Receive Date: 20220818
  Receipt Date: 20220818
  Transmission Date: 20221026
  Serious: Yes (Hospitalization, Other)
  Sender: FDA-Public Use
  Company Number: 2022A285504

PATIENT
  Age: 71 Year
  Sex: Male

DRUGS (1)
  1. IMFINZI [Suspect]
     Active Substance: DURVALUMAB
     Indication: Non-small cell lung cancer
     Route: 041
     Dates: start: 20220218, end: 2022

REACTIONS (4)
  - Pneumothorax [Unknown]
  - Metastases to soft tissue [Unknown]
  - Pneumonia [Unknown]
  - Acquired diaphragmatic eventration [Unknown]

NARRATIVE: CASE EVENT DATE: 20220323
